FAERS Safety Report 15310977 (Version 2)
Quarter: 2018Q3

REPORT INFORMATION
  Report Type: Spontaneous
  Country: US (occurrence: US)
  Receive Date: 20180823
  Receipt Date: 20180901
  Transmission Date: 20181010
  Serious: Yes (Other)
  Sender: FDA-Public Use
  Company Number: US-TEVA-2018-US-947979

PATIENT
  Sex: Female

DRUGS (2)
  1. VALSARTAN W/HYDROCHLOROTHIAZIDE [Suspect]
     Active Substance: HYDROCHLOROTHIAZIDE\VALSARTAN
     Indication: HYPERTENSION
     Dosage: DOSAGE STRENGTH: 80/12.5MG
     Route: 065
     Dates: start: 2010
  2. VALSARTAN W/HYDROCHLOROTHIAZIDE [Suspect]
     Active Substance: HYDROCHLOROTHIAZIDE\VALSARTAN
     Route: 065

REACTIONS (3)
  - Skin cancer [Unknown]
  - Bone cancer [Unknown]
  - Uterine cancer [Unknown]
